FAERS Safety Report 25259281 (Version 1)
Quarter: 2025Q2

REPORT INFORMATION
  Report Type: Spontaneous
  Country: US (occurrence: None)
  Receive Date: 20250501
  Receipt Date: 20250501
  Transmission Date: 20250716
  Serious: Yes (Hospitalization)
  Sender: FDA-CTU
  Company Number: None

PATIENT
  Age: 57 Year
  Sex: Female
  Weight: 36.69 kg

DRUGS (6)
  1. CYCLOPHOSPHAMIDE [Suspect]
     Active Substance: CYCLOPHOSPHAMIDE
  2. CYTARABINE [Suspect]
     Active Substance: CYTARABINE
  3. DOXORUBICIN HYDROCHLORIDE [Suspect]
     Active Substance: DOXORUBICIN HYDROCHLORIDE
  4. PONATINIB [Suspect]
     Active Substance: PONATINIB
  5. PREDNISONE [Suspect]
     Active Substance: PREDNISONE
  6. VINCRISTINE SULFATE [Concomitant]
     Active Substance: VINCRISTINE SULFATE

REACTIONS (1)
  - Blood creatinine increased [None]

NARRATIVE: CASE EVENT DATE: 20250422
